FAERS Safety Report 4647767-5 (Version None)
Quarter: 2005Q2

REPORT INFORMATION
  Report Type: 
  Country: None (occurrence: None)
  Receive Date: 20050427
  Receipt Date: 20050427
  Transmission Date: 20051028
  Serious: Yes (Other)
  Sender: FDA-Public Use
  Company Number: None

PATIENT
  Sex: Female
  Weight: 76.4 kg

DRUGS (3)
  1. TEMODAR [Suspect]
     Dosage: 70MG/M2 CONCURRENT WITH XRT FOLLOWED BY 150MG/M2 D1-D5
     Dates: start: 20050407
  2. IRINOTECAN HCL [Suspect]
     Dosage: 200MG/M2 D1 AND D15
     Dates: start: 20050407, end: 20050407
  3. XRT RADIATION THERAPY [Suspect]
     Dosage: 60 GY
     Dates: end: 20050304

REACTIONS (3)
  - DRUG TOXICITY [None]
  - NEUTROPHIL COUNT DECREASED [None]
  - WHITE BLOOD CELL COUNT DECREASED [None]
